FAERS Safety Report 7752526-0 (Version None)
Quarter: 2011Q3

REPORT INFORMATION
  Report Type: 
  Country: None (occurrence: None)
  Receive Date: 20110915
  Receipt Date: 20110831
  Transmission Date: 20111222
  Serious: No
  Sender: FDA-Public Use
  Company Number: US-PFIZER INC-2011210941

PATIENT
  Sex: Male
  Weight: 68.4 kg

DRUGS (1)
  1. HYDROCORTISONE [Suspect]

REACTIONS (1)
  - FEELING ABNORMAL [None]
